FAERS Safety Report 9235510 (Version 1)
Quarter: 2013Q1

REPORT INFORMATION
  Report Type: Spontaneous
  Country: US (occurrence: None)
  Receive Date: 20121031
  Receipt Date: 20121031
  Transmission Date: 20140127
  Serious: Yes (Other)
  Sender: FDA-Public Use
  Company Number: PHEH2012US015160

PATIENT
  Age: 51 Year
  Sex: Female
  Weight: 63.01 kg

DRUGS (10)
  1. GILENYA [Suspect]
     Indication: MULTIPLE SCLEROSIS
     Route: 048
     Dates: start: 20111010
  2. CYMBALTA (DULOXETINE HYDROCHLORIDE) EXTENDED RELEASE CAPSULES [Concomitant]
  3. NORTRIPTYLINE (NORTRIPTYLINE) CAPSULES [Concomitant]
  4. METOPROLOL (METOPROLOL) TABLET [Concomitant]
  5. METFORMIN (METFORMIN) TABLET [Concomitant]
  6. ASPIRIN (ACETYLSALICYLIC ACID) [Concomitant]
  7. MULTIVITAMINS (ASCORBIC ACID, ERGOCALCIFEROL, FOLIC ACID, NICOTINAMIDE, PANTHENOL, RETINOL,RIBOFLAVIN, THIAMINE HYDROCHLORIDE) TABLET [Concomitant]
  8. RAMIPRIL (RAMIPRIL) TABLET [Concomitant]
  9. JANUVIA (SITAGLIPTIN PHOSPHATE) TABLET [Concomitant]
  10. VYTORIN (EZETIMIBE, SIMVASTATIN) TABLET [Concomitant]

REACTIONS (3)
  - Anxiety [None]
  - Crying [None]
  - Depression [None]
